FAERS Safety Report 10088922 (Version 1)
Quarter: 2014Q2

REPORT INFORMATION
  Report Type: Spontaneous
  Country: US (occurrence: US)
  Receive Date: 20140421
  Receipt Date: 20140421
  Transmission Date: 20141212
  Serious: Yes (Hospitalization, Other)
  Sender: FDA-Public Use
  Company Number: US-DRREDDYS-USA/USA/14/0039102

PATIENT
  Age: 43 Year
  Sex: Male

DRUGS (2)
  1. QUETIAPINE FUMARATE TABLETS [Suspect]
     Indication: SCHIZOAFFECTIVE DISORDER
     Dosage: 100 MG EVERY MORNING AND 200 MG EVERY EVENING
     Route: 048
  2. SULFASALAZINE [Concomitant]
     Indication: COLITIS ULCERATIVE
     Route: 065

REACTIONS (1)
  - Priapism [Recovered/Resolved]
